FAERS Safety Report 15491280 (Version 3)
Quarter: 2018Q4

REPORT INFORMATION
  Report Type: Spontaneous
  Country: US (occurrence: US)
  Receive Date: 20181012
  Receipt Date: 20181127
  Transmission Date: 20190205
  Serious: No
  Sender: FDA-Public Use
  Company Number: US-ASTRAZENECA-2018SF30944

PATIENT
  Age: 20852 Day
  Sex: Male
  Weight: 86.2 kg

DRUGS (7)
  1. CALQUENCE [Suspect]
     Active Substance: ACALABRUTINIB
     Indication: MANTLE CELL LYMPHOMA
     Dosage: 100MG/G DAILY
     Route: 048
     Dates: start: 20180828
  2. GENERIC PEPCID [Concomitant]
     Dosage: UNKNOWN
     Route: 048
  3. CALQUENCE [Suspect]
     Active Substance: ACALABRUTINIB
     Indication: LYMPHADENOPATHY
     Dosage: 100MG/G DAILY
     Route: 048
     Dates: start: 20180828
  4. LEVAQUIN [Concomitant]
     Active Substance: LEVOFLOXACIN
     Dosage: UNKNOWN
     Route: 048
  5. ALOPENAROL [Concomitant]
     Dosage: UNKNOWN
     Route: 048
  6. ACYCLOVIR. [Concomitant]
     Active Substance: ACYCLOVIR
     Route: 048
  7. FLUCONAZOLE. [Concomitant]
     Active Substance: FLUCONAZOLE
     Dosage: UNKNOWN
     Route: 048

REACTIONS (2)
  - Peripheral swelling [Unknown]
  - Lymphadenopathy [Not Recovered/Not Resolved]

NARRATIVE: CASE EVENT DATE: 20180207
